FAERS Safety Report 13301136 (Version 1)
Quarter: 2017Q1

REPORT INFORMATION
  Report Type: Spontaneous
  Country: US (occurrence: US)
  Receive Date: 20170306
  Receipt Date: 20170306
  Transmission Date: 20170428
  Serious: Yes (Hospitalization)
  Sender: FDA-Public Use
  Company Number: None

PATIENT
  Age: 67 Year
  Sex: Male
  Weight: 108 kg

DRUGS (12)
  1. POTASSIUM CHLORIDE. [Concomitant]
     Active Substance: POTASSIUM CHLORIDE
  2. ASPIRIN. [Concomitant]
     Active Substance: ASPIRIN
  3. NALOXEGOL [Concomitant]
     Active Substance: NALOXEGOL
  4. DOCUSATE SODIUM. [Concomitant]
     Active Substance: DOCUSATE SODIUM
  5. IBUPROFEN. [Concomitant]
     Active Substance: IBUPROFEN
  6. INSULIN GLARGINE [Concomitant]
     Active Substance: INSULIN GLARGINE
  7. FUROSEMIDE. [Concomitant]
     Active Substance: FUROSEMIDE
  8. ADEMPAS [Suspect]
     Active Substance: RIOCIGUAT
     Indication: PULMONARY HYPERTENSION
     Route: 048
  9. OXYMORPHONE [Concomitant]
     Active Substance: OXYMORPHONE
  10. PRAVASTATIN. [Concomitant]
     Active Substance: PRAVASTATIN
  11. PAROXETINE. [Concomitant]
     Active Substance: PAROXETINE
  12. AMLODIPINE [Concomitant]
     Active Substance: AMLODIPINE BESYLATE

REACTIONS (1)
  - Subdural haematoma [None]

NARRATIVE: CASE EVENT DATE: 20170217
